FAERS Safety Report 14202280 (Version 4)
Quarter: 2018Q2

REPORT INFORMATION
  Report Type: Report from Study
  Country: US (occurrence: US)
  Receive Date: 20171117
  Receipt Date: 20180604
  Transmission Date: 20180711
  Serious: Yes (Death, Hospitalization)
  Sender: FDA-Public Use
  Company Number: US-ACTELION-A-NJ2017-162424

PATIENT
  Age: 45 Year
  Sex: Female
  Weight: 92.97 kg

DRUGS (5)
  1. REMODULIN [Suspect]
     Active Substance: TREPROSTINIL
     Indication: PRODUCT USED FOR UNKNOWN INDICATION
     Dosage: UNK
     Route: 065
     Dates: start: 20171023, end: 201710
  2. ADCIRCA [Concomitant]
     Active Substance: TADALAFIL
  3. OPSUMIT [Suspect]
     Active Substance: MACITENTAN
     Indication: PULMONARY HYPERTENSION
     Dosage: 10 MG, QD
     Route: 048
  4. VELETRI [Concomitant]
     Active Substance: EPOPROSTENOL
     Indication: PULMONARY ARTERIAL HYPERTENSION
  5. FLOLAN [Suspect]
     Active Substance: EPOPROSTENOL SODIUM
     Indication: PRODUCT USED FOR UNKNOWN INDICATION
     Dosage: UNK
     Route: 042
     Dates: start: 201710

REACTIONS (9)
  - Headache [Unknown]
  - Oxygen saturation decreased [Unknown]
  - Right ventricular failure [Fatal]
  - Hypotension [Unknown]
  - Nausea [Unknown]
  - Oxygen consumption increased [Unknown]
  - Fluid retention [Unknown]
  - Concomitant disease aggravated [Fatal]
  - Throat tightness [Unknown]

NARRATIVE: CASE EVENT DATE: 20180522
